FAERS Safety Report 5754706-2 (Version None)
Quarter: 2008Q2

REPORT INFORMATION
  Report Type: 
  Country: None (occurrence: None)
  Receive Date: 20080530
  Receipt Date: 20080523
  Transmission Date: 20081010
  Serious: Yes (Other)
  Sender: FDA-Public Use
  Company Number: US-GENENTECH-261783

PATIENT

DRUGS (2)
  1. AVASTIN [Suspect]
     Indication: HAEMANGIOMA
  2. AVASTIN [Suspect]
     Indication: THROMBOCYTOPENIA

REACTIONS (1)
  - BONE LESION [None]
